FAERS Safety Report 7988310-2 (Version None)
Quarter: 2011Q4

REPORT INFORMATION
  Report Type: 
  Country: None (occurrence: None)
  Receive Date: 20111216
  Receipt Date: 20111214
  Transmission Date: 20120403
  Serious: Yes (Hospitalization)
  Sender: FDA-Public Use
  Company Number: FR-ABBOTT-11P-056-0883068-00

PATIENT
  Sex: Female

DRUGS (6)
  1. XANAX [Suspect]
     Indication: PRODUCT USED FOR UNKNOWN INDICATION
     Dosage: REGIMEN #1
     Route: 048
  2. PLAVIX [Suspect]
     Indication: INFARCTION
     Dosage: REGIMEN #1
     Route: 048
     Dates: start: 20110901
  3. NEXIUM [Suspect]
     Indication: PRODUCT USED FOR UNKNOWN INDICATION
     Dosage: REGIMEN #1
     Route: 048
  4. BISOPROLOL FUMARATE [Suspect]
     Indication: INFARCTION
     Route: 048
     Dates: start: 20110901
  5. PERINDOPRIL SERVIER [Suspect]
     Indication: INFARCTION
     Dosage: REGIMEN #1
     Dates: start: 20110901
  6. ASPIRIN [Suspect]
     Indication: INFARCTION
     Dosage: REGIMEN #1
     Route: 048
     Dates: start: 20110901

REACTIONS (2)
  - LUNG DISORDER [None]
  - AGRANULOCYTOSIS [None]
